FAERS Safety Report 11877114 (Version 2)
Quarter: 2015Q4

REPORT INFORMATION
  Report Type: Spontaneous
  Country: US (occurrence: US)
  Receive Date: 20151229
  Receipt Date: 20151230
  Transmission Date: 20160305
  Serious: Yes (Other)
  Sender: FDA-Public Use
  Company Number: US-GLAXOSMITHKLINE-US2015181957

PATIENT
  Sex: Female

DRUGS (1)
  1. ANORO ELLIPTA [Suspect]
     Active Substance: UMECLIDINIUM BROMIDE\VILANTEROL TRIFENATATE
     Indication: CHRONIC OBSTRUCTIVE PULMONARY DISEASE
     Dosage: 1 PUFF(S), QD
     Dates: start: 201509

REACTIONS (8)
  - Dyskinesia [Unknown]
  - Tongue disorder [Unknown]
  - Brain oedema [Recovered/Resolved]
  - Dysphagia [Not Recovered/Not Resolved]
  - Protrusion tongue [Recovered/Resolved]
  - Expired product administered [Unknown]
  - Head titubation [Recovered/Resolved]
  - Heart rate increased [Unknown]

NARRATIVE: CASE EVENT DATE: 2015
